FAERS Safety Report 6210594-1 (Version None)
Quarter: 2009Q2

REPORT INFORMATION
  Report Type: 
  Country: None (occurrence: None)
  Receive Date: 20090601
  Receipt Date: 20090525
  Transmission Date: 20091009
  Serious: Yes (Hospitalization)
  Sender: FDA-Public Use
  Company Number: B0575720A

PATIENT
  Age: 63 Year
  Sex: Female
  Weight: 72.3 kg

DRUGS (2)
  1. ADARTREL [Suspect]
     Route: 048
     Dates: start: 20090424, end: 20090425
  2. PRAMIPEXOLE DIHYDROCHLORIDE [Concomitant]
     Indication: PARKINSON'S DISEASE
     Dosage: 3MG PER DAY
     Route: 048
     Dates: start: 20080412

REACTIONS (1)
  - SWOLLEN TONGUE [None]
